FAERS Safety Report 8294839-2 (Version None)
Quarter: 2012Q2

REPORT INFORMATION
  Report Type: 
  Country: None (occurrence: None)
  Receive Date: 20120418
  Receipt Date: 20110914
  Transmission Date: 20120825
  Serious: No
  Sender: FDA-Public Use
  Company Number: US-ASTRAZENECA-2010SE59018

PATIENT
  Age: 64 Year
  Sex: Female

DRUGS (3)
  1. PRILOSEC OTC [Suspect]
     Route: 048
  2. OMEPRAZOLE [Suspect]
     Route: 048
  3. NEXIUM [Suspect]
     Route: 048

REACTIONS (9)
  - DRUG INEFFECTIVE [None]
  - WEIGHT DECREASED [None]
  - DYSPEPSIA [None]
  - DRUG DOSE OMISSION [None]
  - DEPRESSION [None]
  - GASTROINTESTINAL DISORDER [None]
  - MALAISE [None]
  - TONGUE COATED [None]
  - WRONG DRUG ADMINISTERED [None]
